FAERS Safety Report 16170437 (Version 1)
Quarter: 2019Q2

REPORT INFORMATION
  Report Type: Spontaneous
  Country: NL (occurrence: NL)
  Receive Date: 20190408
  Receipt Date: 20190408
  Transmission Date: 20190711
  Serious: Yes (Other)
  Sender: FDA-Public Use
  Company Number: NL-ASTRAZENECA-2019SE45950

PATIENT
  Age: 26085 Day
  Sex: Female

DRUGS (4)
  1. TARCEVA [Concomitant]
     Active Substance: ERLOTINIB HYDROCHLORIDE
     Dosage: 100 AFTER 2 WEEKS
  2. IRESSA [Suspect]
     Active Substance: GEFITINIB
     Indication: NEOPLASM
     Dosage: 1.0MG UNKNOWN
     Route: 048
     Dates: start: 20181122
  3. TARCEVA [Concomitant]
     Active Substance: ERLOTINIB HYDROCHLORIDE
     Dosage: 100 FOR 6 WEEKS
  4. TARCEVA [Concomitant]
     Active Substance: ERLOTINIB HYDROCHLORIDE
     Dosage: 150

REACTIONS (4)
  - Neoplasm progression [Unknown]
  - Abdominal distension [Unknown]
  - Faeces discoloured [Unknown]
  - Abdominal pain upper [Unknown]

NARRATIVE: CASE EVENT DATE: 20190221
